FAERS Safety Report 13251043 (Version 1)
Quarter: 2017Q1

REPORT INFORMATION
  Report Type: Spontaneous
  Country: JP (occurrence: JP)
  Receive Date: 20170220
  Receipt Date: 20170220
  Transmission Date: 20170428
  Serious: Yes (Other)
  Sender: FDA-Public Use
  Company Number: JP-009507513-A201609150

PATIENT
  Age: 18 Year
  Sex: Male
  Weight: 61 kg

DRUGS (10)
  1. PROPOFOL. [Suspect]
     Active Substance: PROPOFOL
     Indication: GENERAL ANAESTHESIA
     Dosage: 120 MG, UNK
     Route: 042
     Dates: start: 20160329
  2. FLUMARIN [Concomitant]
     Active Substance: FLOMOXEF SODIUM
     Indication: APPENDICITIS
     Dosage: 1 G, BID
     Route: 042
     Dates: start: 20160328, end: 20160401
  3. ULTIVA [Suspect]
     Active Substance: REMIFENTANIL HYDROCHLORIDE
     Indication: GENERAL ANAESTHESIA
     Dosage: 2 DF, UNK
     Route: 042
     Dates: start: 20160329
  4. METOCLOPRAMIDE. [Concomitant]
     Active Substance: METOCLOPRAMIDE
     Indication: NAUSEA
     Dosage: 10 MG, WHEN QUEASY
     Route: 042
     Dates: start: 20160328
  5. SEVOFLURANE. [Suspect]
     Active Substance: SEVOFLURANE
     Indication: GENERAL ANAESTHESIA
     Dosage: 80 ML, UNK
     Route: 055
     Dates: start: 20160329
  6. FENTANYL. [Suspect]
     Active Substance: FENTANYL
     Indication: GENERAL ANAESTHESIA
     Dosage: 0.5 MG, UNK
     Route: 042
     Dates: start: 20160329
  7. POPSCAINE [Concomitant]
     Active Substance: LEVOBUPIVACAINE HYDROCHLORIDE
     Indication: POSTOPERATIVE ANALGESIA
     Dosage: 20 ML, UNK
     Route: 061
     Dates: start: 20160329
  8. ROPION [Concomitant]
     Active Substance: FLURBIPROFEN AXETIL
     Indication: POSTOPERATIVE ANALGESIA
     Dosage: 1 DF, BID
     Route: 042
     Dates: start: 20160329, end: 20160330
  9. ESLAX INTRAVENOUS 25MG/2.5ML [Suspect]
     Active Substance: ROCURONIUM BROMIDE
     Indication: NEUROMUSCULAR BLOCKING THERAPY
     Dosage: 70 MG, UNK
     Route: 042
     Dates: start: 20160329, end: 20160329
  10. BRIDION [Suspect]
     Active Substance: SUGAMMADEX
     Indication: NEUROMUSCULAR BLOCKADE REVERSAL
     Dosage: 1 DF, UNK
     Route: 042
     Dates: start: 20160329, end: 20160329

REACTIONS (5)
  - Somnolence [Unknown]
  - Pulmonary haemorrhage [Recovered/Resolved]
  - Glossoptosis [Unknown]
  - Obstructive airways disorder [Unknown]
  - Pulmonary oedema [Recovered/Resolved]

NARRATIVE: CASE EVENT DATE: 20160329
